FAERS Safety Report 10784883 (Version 1)
Quarter: 2015Q1

REPORT INFORMATION
  Report Type: Spontaneous
  Country: GB (occurrence: None)
  Receive Date: 20150209
  Receipt Date: 20150209
  Transmission Date: 20150721
  Serious: Yes (Hospitalization)
  Sender: FDA-Public Use
  Company Number: CL-610-2015

PATIENT
  Age: 64 Year
  Sex: Male

DRUGS (6)
  1. PARACETAMOL [Concomitant]
     Active Substance: ACETAMINOPHEN
  2. REMIFENTANIL [Concomitant]
     Active Substance: REMIFENTANIL
  3. PROPOFOL. [Concomitant]
     Active Substance: PROPOFOL
  4. ONDANSETRON [Suspect]
     Active Substance: ONDANSETRON
     Indication: PROPHYLAXIS OF NAUSEA AND VOMITING
     Route: 042
     Dates: start: 20120517, end: 20120517
  5. DICLOFENAC [Concomitant]
     Active Substance: DICLOFENAC
  6. DEXAMETHASONE. [Concomitant]
     Active Substance: DEXAMETHASONE

REACTIONS (1)
  - Abdominal rigidity [None]

NARRATIVE: CASE EVENT DATE: 20120517
